FAERS Safety Report 6829472-X (Version None)
Quarter: 2010Q3

REPORT INFORMATION
  Report Type: 
  Country: None (occurrence: None)
  Receive Date: 20100709
  Receipt Date: 20070306
  Transmission Date: 20110219
  Serious: Yes (Other)
  Sender: FDA-Public Use
  Company Number: US-PFIZER INC-2007015081

PATIENT
  Sex: Female
  Weight: 74.8 kg

DRUGS (6)
  1. CHANTIX [Suspect]
     Indication: EX-TOBACCO USER
     Route: 048
     Dates: start: 20070214
  2. AMIODARONE HCL [Concomitant]
  3. COREG [Concomitant]
  4. VALSARTAN [Concomitant]
  5. VITAMINS [Concomitant]
  6. NASAL PREPARATIONS [Concomitant]
     Dosage: EVERY MORNING

REACTIONS (10)
  - ABNORMAL DREAMS [None]
  - ASTHENIA [None]
  - DIZZINESS [None]
  - DRUG INEFFECTIVE [None]
  - EPISTAXIS [None]
  - FATIGUE [None]
  - FEELING ABNORMAL [None]
  - HEADACHE [None]
  - SLEEP DISORDER [None]
  - VISUAL ACUITY REDUCED [None]
